FAERS Safety Report 19397858 (Version 2)
Quarter: 2021Q2

REPORT INFORMATION
  Report Type: Spontaneous
  Country: JP (occurrence: JP)
  Receive Date: 20210610
  Receipt Date: 20210624
  Transmission Date: 20210717
  Serious: Yes (Hospitalization, Other)
  Sender: FDA-Public Use
  Company Number: NVSJ2021JP008613

PATIENT
  Age: 85 Year
  Sex: Female

DRUGS (3)
  1. JANUVIA [Concomitant]
     Active Substance: SITAGLIPTIN PHOSPHATE
     Indication: PRODUCT USED FOR UNKNOWN INDICATION
     Dosage: 12.5 MG, QD
     Route: 048
  2. VALSARTAN. [Suspect]
     Active Substance: VALSARTAN
     Indication: HYPERTENSION
     Dosage: 80 MG, QD
     Route: 048
  3. AMLODIPINE [Concomitant]
     Active Substance: AMLODIPINE BESYLATE
     Indication: PRODUCT USED FOR UNKNOWN INDICATION
     Dosage: 5 MG, QD
     Route: 048

REACTIONS (13)
  - Cardiac perforation [Unknown]
  - Tachycardia [Recovering/Resolving]
  - Malaise [Recovering/Resolving]
  - Decreased appetite [Unknown]
  - Congestive hepatopathy [Unknown]
  - Dyspnoea [Unknown]
  - Hepatic enzyme increased [Unknown]
  - Supraventricular extrasystoles [Unknown]
  - Hypotension [Unknown]
  - Troponin I increased [Unknown]
  - Mitral valve incompetence [Recovering/Resolving]
  - Atrial fibrillation [Recovering/Resolving]
  - Myocardial infarction [Unknown]
